FAERS Safety Report 5247357-X (Version None)
Quarter: 2007Q1

REPORT INFORMATION
  Report Type: 
  Country: None (occurrence: None)
  Receive Date: 20070227
  Receipt Date: 20070214
  Transmission Date: 20070707
  Serious: Yes (Other)
  Sender: FDA-Public Use
  Company Number: GBWYE662414FEB07

PATIENT
  Sex: Male

DRUGS (5)
  1. EFFEXOR XR [Suspect]
  2. EFFEXOR XR [Interacting]
  3. LITHIUM CARBONATE [Interacting]
     Dosage: 400 MG (UNKNOWN FREQUENCY)
  4. LITHIUM CARBONATE [Interacting]
     Dosage: 600MG (UNKNOWN FREQUENCY)
  5. OLANZAPINE [Interacting]

REACTIONS (4)
  - DRUG INTERACTION [None]
  - DYSPHORIA [None]
  - MOOD ALTERED [None]
  - THINKING ABNORMAL [None]
